FAERS Safety Report 6115519-5 (Version None)
Quarter: 2009Q1

REPORT INFORMATION
  Report Type: 
  Country: None (occurrence: None)
  Receive Date: 20090313
  Receipt Date: 20090227
  Transmission Date: 20090719
  Serious: Yes (Death, Hospitalization)
  Sender: FDA-Public Use
  Company Number: DE-ROCHE-597987

PATIENT
  Sex: Male
  Weight: 81 kg

DRUGS (6)
  1. CAPECITABINE [Suspect]
     Route: 048
     Dates: start: 20081002, end: 20081029
  2. CAPECITABINE [Suspect]
     Route: 048
     Dates: start: 20081209, end: 20081216
  3. OXALIPLATIN [Suspect]
     Route: 042
     Dates: start: 20081023, end: 20081023
  4. OXALIPLATIN [Suspect]
     Route: 042
     Dates: start: 20081209, end: 20081216
  5. EPIRUBICIN [Suspect]
     Route: 042
     Dates: start: 20081023, end: 20081023
  6. EPIRUBICIN [Suspect]
     Route: 042
     Dates: start: 20081209, end: 20081216

REACTIONS (14)
  - ANOREXIA [None]
  - ASCITES [None]
  - BACK PAIN [None]
  - CHRONIC OBSTRUCTIVE PULMONARY DISEASE [None]
  - DEHYDRATION [None]
  - DIARRHOEA [None]
  - DISEASE PROGRESSION [None]
  - DIZZINESS [None]
  - GENERAL PHYSICAL HEALTH DETERIORATION [None]
  - LEUKOPENIA [None]
  - NAUSEA [None]
  - SYNCOPE [None]
  - THROMBOCYTOPENIA [None]
  - VOMITING [None]
